FAERS Safety Report 5601517-4 (Version None)
Quarter: 2008Q1

REPORT INFORMATION
  Report Type: 
  Country: None (occurrence: None)
  Receive Date: 20080124
  Receipt Date: 20070703
  Transmission Date: 20080703
  Serious: No
  Sender: FDA-Public Use
  Company Number: US-BAYER-200712112BCC

PATIENT
  Age: 50 Year
  Sex: Male
  Weight: 70 kg

DRUGS (7)
  1. ALEVE COLD AND SINUS [Suspect]
     Indication: DRUG USE FOR UNKNOWN INDICATION
     Dosage: TOTAL DAILY DOSE: 220 MG  UNIT DOSE: 220 MG
     Route: 048
     Dates: start: 20070629
  2. LORCET-HD [Concomitant]
     Route: 048
  3. THIAMINE [Concomitant]
     Route: 048
  4. DILANTIN [Concomitant]
     Route: 048
  5. FOLIC ACID [Concomitant]
  6. RANITIDINE [Concomitant]
  7. LIBRIUM [Concomitant]

REACTIONS (3)
  - DIZZINESS [None]
  - FALL [None]
  - GAIT DISTURBANCE [None]
